FAERS Safety Report 5829928-2 (Version None)
Quarter: 2008Q3

REPORT INFORMATION
  Report Type: 
  Country: None (occurrence: None)
  Receive Date: 20080801
  Receipt Date: 20080729
  Transmission Date: 20090109
  Serious: Yes (Hospitalization)
  Sender: FDA-Public Use
  Company Number: US-ASTRAZENECA-2008UW14684

PATIENT
  Age: 39 Year
  Sex: Female
  Weight: 83.9 kg

DRUGS (12)
  1. NEXIUM [Suspect]
     Indication: GASTROOESOPHAGEAL REFLUX DISEASE
     Route: 048
     Dates: start: 20070306, end: 20080728
  2. SYNTHROID [Concomitant]
  3. PLAQUENIL [Concomitant]
  4. ALLEGRA [Concomitant]
  5. SINGULAIR [Concomitant]
  6. ALBUTEROL [Concomitant]
  7. ATROVENT [Concomitant]
  8. ADVAIR DISKUS 100/50 [Concomitant]
  9. TOPROL-XL [Concomitant]
  10. LIPITOR [Concomitant]
  11. VICODIN [Concomitant]
  12. PREDNISONE [Concomitant]

REACTIONS (10)
  - ABDOMINAL DISTENSION [None]
  - ARTHRITIS [None]
  - ASTHMA [None]
  - DYSPNOEA [None]
  - ILL-DEFINED DISORDER [None]
  - LIVER FUNCTION TEST ABNORMAL [None]
  - OESOPHAGEAL OEDEMA [None]
  - PALATAL OEDEMA [None]
  - SWOLLEN TONGUE [None]
  - VOCAL CORD DISORDER [None]
